APPROVED DRUG PRODUCT: TIGECYCLINE
Active Ingredient: TIGECYCLINE
Strength: 50MG/VIAL
Dosage Form/Route: POWDER;INTRAVENOUS
Application: N211158 | Product #001 | TE Code: AP
Applicant: AMNEAL PHARMACEUTICALS LLC
Approved: Aug 2, 2018 | RLD: No | RS: No | Type: RX

PATENTS:
Patent 9855335 | Expires: Apr 7, 2033